FAERS Safety Report 20235490 (Version 2)
Quarter: 2022Q1

REPORT INFORMATION
  Report Type: Report from Study
  Country: CA (occurrence: CA)
  Receive Date: 20211228
  Receipt Date: 20220125
  Transmission Date: 20220423
  Serious: Yes (Hospitalization)
  Sender: FDA-Public Use
  Company Number: CA-BoehringerIngelheim-2021-BI-116850

PATIENT
  Sex: Male

DRUGS (2)
  1. OFEV [Suspect]
     Active Substance: NINTEDANIB
     Indication: Idiopathic pulmonary fibrosis
     Route: 048
     Dates: start: 20210714, end: 20211025
  2. OFEV [Suspect]
     Active Substance: NINTEDANIB
     Route: 048
     Dates: start: 20211105, end: 20211208

REACTIONS (23)
  - Constipation [Not Recovered/Not Resolved]
  - Pain [Recovered/Resolved]
  - Diarrhoea [Recovered/Resolved]
  - Bone pain [Not Recovered/Not Resolved]
  - Diarrhoea [Recovered/Resolved]
  - Dizziness [Recovering/Resolving]
  - Flatulence [Not Recovered/Not Resolved]
  - Diarrhoea [Recovered/Resolved]
  - Insomnia [Unknown]
  - Hypotension [Not Recovered/Not Resolved]
  - Liver function test increased [Unknown]
  - Dizziness [Recovered/Resolved with Sequelae]
  - Dyspnoea [Not Recovered/Not Resolved]
  - Anxiety [Not Recovered/Not Resolved]
  - Diarrhoea [Recovered/Resolved]
  - Decreased appetite [Not Recovered/Not Resolved]
  - Fatigue [Not Recovered/Not Resolved]
  - Pollakiuria [Not Recovered/Not Resolved]
  - Chest discomfort [Not Recovered/Not Resolved]
  - Abdominal pain upper [Recovered/Resolved]
  - Dizziness [Recovered/Resolved]
  - Weight decreased [Not Recovered/Not Resolved]
  - Faecal disimpaction [Unknown]
